FAERS Safety Report 5684355-6 (Version None)
Quarter: 2008Q1

REPORT INFORMATION
  Report Type: 
  Country: None (occurrence: None)
  Receive Date: 20080328
  Receipt Date: 20080317
  Transmission Date: 20080703
  Serious: Yes (Hospitalization)
  Sender: FDA-Public Use
  Company Number: B0512629A

PATIENT
  Age: 18 Year
  Sex: Female

DRUGS (2)
  1. LAMICTAL [Suspect]
     Indication: EPILEPSY
     Route: 048
     Dates: start: 20071201, end: 20080220
  2. URBANYL [Suspect]
     Indication: EPILEPSY
     Route: 048
     Dates: start: 20071201, end: 20080220

REACTIONS (9)
  - ARTHRALGIA [None]
  - C-REACTIVE PROTEIN INCREASED [None]
  - GUILLAIN-BARRE SYNDROME [None]
  - INFECTION [None]
  - LUPUS-LIKE SYNDROME [None]
  - MUSCULAR WEAKNESS [None]
  - MYALGIA [None]
  - PERICARDITIS [None]
  - PHARYNGOLARYNGEAL PAIN [None]
